FAERS Safety Report 14109931 (Version 1)
Quarter: 2017Q4

REPORT INFORMATION
  Report Type: Spontaneous
  Country: US (occurrence: US)
  Receive Date: 20171020
  Receipt Date: 20171020
  Transmission Date: 20180321
  Serious: No
  Sender: FDA-Public Use
  Company Number: US-TEVA-784502ACC

PATIENT
  Age: 65 Year
  Sex: Female
  Weight: 63.56 kg

DRUGS (2)
  1. MICONAZOLE. [Suspect]
     Active Substance: MICONAZOLE
     Indication: FUNGAL INFECTION
  2. MICONAZOLE. [Suspect]
     Active Substance: MICONAZOLE
     Indication: POOR PERSONAL HYGIENE
     Dates: start: 20170612, end: 20170619

REACTIONS (1)
  - Drug ineffective [Unknown]
